FAERS Safety Report 18958970 (Version 1)
Quarter: 2021Q1

REPORT INFORMATION
  Report Type: Spontaneous
  Country: US (occurrence: US)
  Receive Date: 20210302
  Receipt Date: 20210302
  Transmission Date: 20210420
  Serious: No
  Sender: FDA-Public Use
  Company Number: US-SA-2021SA066347

PATIENT
  Age: 60 Year
  Sex: Female

DRUGS (6)
  1. CLOBETASOL [CLOBETASOL PROPIONATE] [Concomitant]
  2. GABAPENTINE [Concomitant]
     Active Substance: GABAPENTIN
  3. DUPIXENT [Suspect]
     Active Substance: DUPILUMAB
     Indication: DERMATITIS ATOPIC
     Dosage: 300 MG, QOW
     Route: 058
     Dates: start: 20200310
  4. LISINOPRIL. [Concomitant]
     Active Substance: LISINOPRIL
  5. AZELASTINE;FLUTICASONE [Concomitant]
     Active Substance: AZELASTINE HYDROCHLORIDE\FLUTICASONE PROPIONATE
  6. BISOPROLOL FUMARATE. [Concomitant]
     Active Substance: BISOPROLOL FUMARATE

REACTIONS (1)
  - Dermatitis atopic [Not Recovered/Not Resolved]
